FAERS Safety Report 14628167 (Version 1)
Quarter: 2018Q1

REPORT INFORMATION
  Report Type: Spontaneous
  Country: US (occurrence: US)
  Receive Date: 20180312
  Receipt Date: 20180312
  Transmission Date: 20180509
  Serious: No
  Sender: FDA-Public Use
  Company Number: US-ALLERGAN-1801034US

PATIENT
  Age: 72 Year
  Sex: Female
  Weight: 52.61 kg

DRUGS (1)
  1. ESTRACE [Suspect]
     Active Substance: ESTRADIOL
     Indication: VULVOVAGINAL DRYNESS
     Dosage: 0.5 G, Q WEEK
     Route: 067

REACTIONS (2)
  - Incorrect dose administered [Unknown]
  - Urinary tract infection [Recovered/Resolved]
